FAERS Safety Report 4467029-9 (Version None)
Quarter: 2004Q4

REPORT INFORMATION
  Report Type: 
  Country: None (occurrence: None)
  Receive Date: 20041004
  Receipt Date: 20040921
  Transmission Date: 20050328
  Serious: Yes (Hospitalization)
  Sender: FDA-Public Use
  Company Number: 2004069541

PATIENT
  Sex: Male

DRUGS (3)
  1. GEODON [Suspect]
     Indication: DEPRESSION
  2. RISPERDAL [Suspect]
     Indication: DEPRESSION
  3. SERTRALINE HCL [Concomitant]

REACTIONS (1)
  - DRUG HYPERSENSITIVITY [None]
